FAERS Safety Report 20427931 (Version 1)
Quarter: 2022Q1

REPORT INFORMATION
  Report Type: Spontaneous
  Country: JP (occurrence: JP)
  Receive Date: 20220204
  Receipt Date: 20220204
  Transmission Date: 20220423
  Serious: Yes (Other)
  Sender: FDA-Public Use
  Company Number: JP-SA-2021SA413790

PATIENT
  Age: 60 Year
  Sex: Male

DRUGS (8)
  1. DUPIXENT [Suspect]
     Active Substance: DUPILUMAB
     Indication: Chronic rhinosinusitis with nasal polyps
     Dosage: 1ST DOSE
     Route: 058
     Dates: start: 20211013, end: 20211013
  2. DUPIXENT [Suspect]
     Active Substance: DUPILUMAB
     Dosage: 2ND DOSE
     Route: 058
     Dates: start: 20211027, end: 20211027
  3. FLUTICASONE FUROATE\VILANTEROL TRIFENATATE [Concomitant]
     Active Substance: FLUTICASONE FUROATE\VILANTEROL TRIFENATATE
     Indication: Product used for unknown indication
     Route: 065
  4. BETAMETHASONE [Concomitant]
     Active Substance: BETAMETHASONE
     Indication: Parosmia
     Dosage: SEVERAL DROPS/DOSE, BID
     Route: 045
     Dates: start: 20210629
  5. SODIUM CHLORIDE [Concomitant]
     Active Substance: SODIUM CHLORIDE
     Indication: Nasal irrigation
     Dosage: 10 ML, BID
     Route: 045
     Dates: start: 20210629
  6. FLUTICASONE FUROATE [Concomitant]
     Active Substance: FLUTICASONE FUROATE
     Indication: Rhinitis
     Dosage: 2 SPRAYS/DOSE, QD
     Route: 045
     Dates: start: 20210629
  7. BETAMETHASONE [Concomitant]
     Active Substance: BETAMETHASONE
     Indication: Otitis media
     Dosage: 1 DF, QD
     Route: 048
     Dates: start: 20211027
  8. NEXIUM [Concomitant]
     Active Substance: ESOMEPRAZOLE MAGNESIUM
     Indication: Oesophagitis
     Dosage: 1 DF, QD
     Route: 048
     Dates: start: 20211027

REACTIONS (3)
  - Asthma [Recovered/Resolved]
  - Headache [Recovered/Resolved]
  - Cough [Recovered/Resolved]

NARRATIVE: CASE EVENT DATE: 20211031
